FAERS Safety Report 6726094-6 (Version None)
Quarter: 2010Q2

REPORT INFORMATION
  Report Type: 
  Country: None (occurrence: None)
  Receive Date: 20100514
  Receipt Date: 20100507
  Transmission Date: 20101027
  Serious: Yes (Other)
  Sender: FDA-Public Use
  Company Number: US-GENENTECH-301616

PATIENT
  Sex: Female
  Weight: 139.68 kg

DRUGS (3)
  1. RITUXAN [Suspect]
     Indication: DRUG USE FOR UNKNOWN INDICATION
     Dosage: UNK
     Dates: start: 20090922
  2. REMICADE [Suspect]
     Indication: COLITIS ULCERATIVE
     Dosage: UNK, Q8W
     Route: 042
     Dates: start: 20060601
  3. AZATHIOPRINE [Concomitant]
     Indication: COLITIS ULCERATIVE
     Dosage: UNK
     Dates: start: 20050101

REACTIONS (2)
  - DRUG ADMINISTRATION ERROR [None]
  - RECTAL HAEMORRHAGE [None]
